FAERS Safety Report 23548284 (Version 1)
Quarter: 2024Q1

REPORT INFORMATION
  Report Type: Spontaneous
  Country: US (occurrence: US)
  Receive Date: 20240221
  Receipt Date: 20240221
  Transmission Date: 20240410
  Serious: Yes (Life-Threatening, Hospitalization, Other)
  Sender: FDA-Public Use
  Company Number: US-PFIZER INC-PV202400019347

PATIENT
  Age: 12 Year
  Sex: Male

DRUGS (8)
  1. AVIBACTAM SODIUM [Suspect]
     Active Substance: AVIBACTAM SODIUM
     Indication: Escherichia infection
     Route: 065
  2. AVIBACTAM SODIUM [Suspect]
     Active Substance: AVIBACTAM SODIUM
     Indication: Escherichia infection
     Dosage: TIME INTERVAL: 0.33333333 DAYS: ON HD28 DISCONTINUED
     Route: 065
  3. CEFIDEROCOL [Suspect]
     Active Substance: CEFIDEROCOL
     Indication: Antibiotic therapy
     Dosage: TIME INTERVAL: 0.33333333 DAYS: EVERY 8 HOURS
     Route: 065
  4. AZTREONAM [Suspect]
     Active Substance: AZTREONAM
     Indication: Escherichia infection
     Route: 065
  5. AZTREONAM [Suspect]
     Active Substance: AZTREONAM
     Indication: Escherichia infection
     Dosage: EVERY 6 HOURS, DISCONTINUED ON HD 28
     Route: 065
  6. TOBRAMYCIN [Concomitant]
     Active Substance: TOBRAMYCIN
     Indication: Antibiotic therapy
     Dosage: 320 MG, 1TIMES/DAY
     Route: 065
  7. POLYMYXIN B [Concomitant]
     Active Substance: POLYMYXIN B
     Indication: Antibiotic therapy
     Dosage: LOADING DOSE OF 1000000 U
     Route: 065
  8. POLYMYXIN B [Concomitant]
     Active Substance: POLYMYXIN B
     Indication: Antibiotic therapy
     Dosage: 12500 U/KG EVERY 12 HOURS
     Route: 065

REACTIONS (2)
  - Drug resistance [Not Recovered/Not Resolved]
  - Treatment failure [Not Recovered/Not Resolved]
